FAERS Safety Report 8975427 (Version 1)
Quarter: 2012Q4

REPORT INFORMATION
  Report Type: 
  Country: US (occurrence: US)
  Receive Date: 20121219
  Receipt Date: 20121219
  Transmission Date: 20130627
  Serious: No
  Sender: FDA-Public Use
  Company Number: US-AMGEN-USASP2012073110

PATIENT
  Age: 87 Year
  Sex: Female

DRUGS (2)
  1. PROLIA [Suspect]
     Indication: OSTEOPOROSIS POSTMENOPAUSAL
     Dosage: UNK UNK, q6mo
     Dates: start: 2011
  2. SYNTHROID [Concomitant]
     Dosage: UNK

REACTIONS (5)
  - Pain [Unknown]
  - Balance disorder [Unknown]
  - Gait disturbance [Unknown]
  - Feeling abnormal [Unknown]
  - Bone pain [Unknown]
